FAERS Safety Report 21541891 (Version 2)
Quarter: 2024Q2

REPORT INFORMATION
  Report Type: Spontaneous
  Country: KR (occurrence: KR)
  Receive Date: 20221102
  Receipt Date: 20240429
  Transmission Date: 20240716
  Serious: Yes (Other)
  Sender: FDA-Public Use
  Company Number: KR-MYLANLABS-2022M1119666

PATIENT
  Age: 55 Year
  Sex: Male

DRUGS (4)
  1. LYRICA [Suspect]
     Active Substance: PREGABALIN
     Indication: Malignant neoplasm of thymus
     Dosage: 1 DOSAGE FORM, BID
     Route: 048
     Dates: start: 20190814, end: 20190819
  2. CELECOXIB [Suspect]
     Active Substance: CELECOXIB
     Indication: Malignant neoplasm of thymus
     Dosage: 1 DOSAGE FORM, BID
     Route: 048
     Dates: start: 20190807, end: 20190819
  3. CEFOTAXIME SODIUM [Suspect]
     Active Substance: CEFOTAXIME SODIUM
     Indication: Malignant neoplasm of thymus
     Dosage: 2 GRAM, Q8H
     Route: 042
     Dates: start: 20190804, end: 20190812
  4. CEFOTAXIME SODIUM [Suspect]
     Active Substance: CEFOTAXIME SODIUM
     Dosage: 2 GRAM, Q8H
     Route: 042
     Dates: start: 20190819, end: 20190819

REACTIONS (6)
  - Drug reaction with eosinophilia and systemic symptoms [Recovering/Resolving]
  - Pancytopenia [Not Recovered/Not Resolved]
  - Liver function test abnormal [Not Recovered/Not Resolved]
  - Rash maculo-papular [Recovered/Resolved]
  - Pyrexia [Not Recovered/Not Resolved]
  - Off label use [Unknown]

NARRATIVE: CASE EVENT DATE: 20190807
